FAERS Safety Report 7685470-8 (Version None)
Quarter: 2011Q3

REPORT INFORMATION
  Report Type: 
  Country: None (occurrence: None)
  Receive Date: 20110815
  Receipt Date: 20110815
  Transmission Date: 20111222
  Serious: Yes (Disabling)
  Sender: FDA-Public Use
  Company Number: None

PATIENT
  Age: 51 Year
  Sex: Female
  Weight: 113.3993 kg

DRUGS (3)
  1. METOCLOPRAMIDE [Suspect]
     Indication: GASTROOESOPHAGEAL REFLUX DISEASE
     Dates: start: 20070425, end: 20070802
  2. METOCLOPRAMIDE [Suspect]
     Indication: NAUSEA
     Dates: start: 20070425, end: 20070802
  3. AMITRIPTYLINE HCL [Suspect]
     Dates: start: 20080305, end: 20090312

REACTIONS (3)
  - TREMOR [None]
  - BLEPHAROSPASM [None]
  - HYPOAESTHESIA [None]
